FAERS Safety Report 5036763-4 (Version None)
Quarter: 2006Q2

REPORT INFORMATION
  Report Type: 
  Country: None (occurrence: None)
  Receive Date: 20060616
  Receipt Date: 20060221
  Transmission Date: 20061013
  Serious: No
  Sender: FDA-Public Use
  Company Number: 2006RL000053

PATIENT
  Age: 71 Year
  Sex: Female
  Weight: 77.1115 kg

DRUGS (7)
  1. OMACOR [Suspect]
     Indication: BLOOD TRIGLYCERIDES INCREASED
     Dosage: 4 GM;QD;PO
     Route: 048
     Dates: start: 20060101
  2. LIPITOR [Concomitant]
  3. PLAVIX [Concomitant]
  4. ALTACE [Concomitant]
  5. PINDOLOL [Concomitant]
  6. VOPEX [Concomitant]
  7. NEXIUM [Concomitant]

REACTIONS (2)
  - ERUCTATION [None]
  - FLATULENCE [None]
